FAERS Safety Report 9798432 (Version 2)
Quarter: 2014Q1

REPORT INFORMATION
  Report Type: Spontaneous
  Country: US (occurrence: US)
  Receive Date: 20140106
  Receipt Date: 20140321
  Transmission Date: 20141002
  Serious: Yes (Congenital Anomaly, Other)
  Sender: FDA-Public Use
  Company Number: US-PFIZER INC-2014000884

PATIENT
  Sex: Male

DRUGS (19)
  1. SERTRALINE HCL [Suspect]
     Indication: ANXIETY
     Dosage: UNK
     Route: 064
     Dates: start: 200901, end: 200909
  2. SERTRALINE HCL [Suspect]
     Indication: DEPRESSION
  3. SERTRALINE HCL [Suspect]
     Indication: AFFECTIVE DISORDER
  4. PRENATAL PLUS [Concomitant]
     Dosage: UNK
     Route: 064
  5. GEODON [Concomitant]
     Dosage: UNK
     Route: 064
  6. FERROUS SULFATE [Concomitant]
     Dosage: UNK
     Route: 064
  7. TERCONAZOLE [Concomitant]
     Dosage: UNK
     Route: 064
  8. HYDROXYZINE PAM [Concomitant]
     Dosage: UNK
     Route: 064
  9. AMPHETAMINE SALTS [Concomitant]
     Dosage: UNK
     Route: 064
  10. TRAZODONE [Concomitant]
     Dosage: UNK
     Route: 064
  11. FLUVIRIN [Concomitant]
     Dosage: UNK
     Route: 064
  12. OXYCODONE/ACETAMINOPHEN [Concomitant]
     Dosage: UNK
     Route: 064
  13. CITALOPRAM [Concomitant]
     Dosage: UNK
     Route: 064
  14. PHENAZOPYRIDINE [Concomitant]
     Dosage: UNK
     Route: 064
  15. PROPOXYPHENE-ACETAMINOPHEN [Concomitant]
     Dosage: UNK
     Route: 064
  16. CLONIDINE HYDROCHLORIDE [Concomitant]
     Dosage: UNK
     Route: 064
  17. CIPROFLOXACIN HYDROCHLORIDE [Concomitant]
     Dosage: UNK
     Route: 064
  18. FLUOXETINE HYDROCHLORIDE [Concomitant]
     Dosage: UNK
     Route: 064
  19. METOCLOPRAMIDE [Concomitant]
     Dosage: UNK
     Route: 064

REACTIONS (3)
  - Maternal exposure during pregnancy [Unknown]
  - Cleft lip and palate [Unknown]
  - Congenital jaw malformation [Unknown]
